FAERS Safety Report 15859192 (Version 1)
Quarter: 2019Q1

REPORT INFORMATION
  Report Type: Spontaneous
  Country: US (occurrence: US)
  Receive Date: 20190121
  Receipt Date: 20190121
  Transmission Date: 20190417
  Serious: No
  Sender: FDA-Public Use
  Company Number: None

PATIENT

DRUGS (1)
  1. ZYTIGA TAB 500MG [Suspect]
     Active Substance: ABIRATERONE ACETATE
     Dates: start: 20181213, end: 20181218

REACTIONS (1)
  - Dizziness [None]

NARRATIVE: CASE EVENT DATE: 20181213
